FAERS Safety Report 13729133 (Version 1)
Quarter: 2017Q3

REPORT INFORMATION
  Report Type: Spontaneous
  Country: US (occurrence: US)
  Receive Date: 20170707
  Receipt Date: 20170707
  Transmission Date: 20171127
  Serious: No
  Sender: FDA-Public Use
  Company Number: US-JNJFOC-20170429024

PATIENT
  Sex: Male

DRUGS (9)
  1. INVEGA [Suspect]
     Active Substance: PALIPERIDONE
     Indication: BIPOLAR DISORDER
     Route: 048
     Dates: start: 2007, end: 2011
  2. INVEGA [Suspect]
     Active Substance: PALIPERIDONE
     Indication: REACTIVE ATTACHMENT DISORDER OF INFANCY OR EARLY CHILDHOOD
     Route: 048
     Dates: start: 2007, end: 2011
  3. RISPERDAL [Suspect]
     Active Substance: RISPERIDONE
     Indication: ATTENTION DEFICIT/HYPERACTIVITY DISORDER
     Route: 048
     Dates: start: 2006, end: 2007
  4. RISPERDAL [Suspect]
     Active Substance: RISPERIDONE
     Indication: ATTENTION DEFICIT/HYPERACTIVITY DISORDER
     Route: 048
  5. RISPERDAL [Suspect]
     Active Substance: RISPERIDONE
     Indication: REACTIVE ATTACHMENT DISORDER OF INFANCY OR EARLY CHILDHOOD
     Route: 048
     Dates: start: 2006, end: 2007
  6. RISPERDAL [Suspect]
     Active Substance: RISPERIDONE
     Indication: BIPOLAR DISORDER
     Route: 048
     Dates: start: 2006, end: 2007
  7. RISPERDAL [Suspect]
     Active Substance: RISPERIDONE
     Indication: BIPOLAR DISORDER
     Route: 048
  8. RISPERDAL [Suspect]
     Active Substance: RISPERIDONE
     Indication: REACTIVE ATTACHMENT DISORDER OF INFANCY OR EARLY CHILDHOOD
     Route: 048
  9. INVEGA [Suspect]
     Active Substance: PALIPERIDONE
     Indication: ATTENTION DEFICIT/HYPERACTIVITY DISORDER
     Route: 048
     Dates: start: 2007, end: 2011

REACTIONS (2)
  - Gynaecomastia [Unknown]
  - Abnormal weight gain [Unknown]

NARRATIVE: CASE EVENT DATE: 2007
